FAERS Safety Report 18701611 (Version 2)
Quarter: 2021Q1

REPORT INFORMATION
  Report Type: Spontaneous
  Country: US (occurrence: US)
  Receive Date: 20210105
  Receipt Date: 20210115
  Transmission Date: 20210419
  Serious: Yes (Other)
  Sender: FDA-Public Use
  Company Number: US-ASTRAZENECA-2020SF75322

PATIENT
  Age: 27059 Day
  Sex: Male
  Weight: 105.2 kg

DRUGS (7)
  1. DEXTROSE DEX 4 [Concomitant]
     Indication: BLOOD GLUCOSE DECREASED
     Dosage: 4.0G AS REQUIRED
     Route: 048
  2. METFORMIN [Concomitant]
     Active Substance: METFORMIN HYDROCHLORIDE
     Indication: DIABETES MELLITUS
     Route: 048
  3. BYDUREON BCISE [Suspect]
     Active Substance: EXENATIDE
     Indication: TYPE 2 DIABETES MELLITUS
     Route: 058
  4. GLYBURIDE. [Concomitant]
     Active Substance: GLYBURIDE
     Indication: DIABETES MELLITUS
     Route: 048
     Dates: start: 202010
  5. GLIPIZIDE. [Concomitant]
     Active Substance: GLIPIZIDE
     Indication: DIABETES MELLITUS
     Route: 048
     Dates: start: 201811, end: 2019
  6. BYDUREON [Suspect]
     Active Substance: EXENATIDE
     Indication: TYPE 2 DIABETES MELLITUS
     Route: 058
  7. GLYBURIDE. [Concomitant]
     Active Substance: GLYBURIDE
     Indication: DIABETES MELLITUS
     Route: 048
     Dates: end: 202010

REACTIONS (8)
  - Blood glucose decreased [Unknown]
  - Incorrect dose administered by device [Unknown]
  - Gait disturbance [Not Recovered/Not Resolved]
  - Device use issue [Unknown]
  - Device leakage [Unknown]
  - Osteoarthritis [Recovered/Resolved with Sequelae]
  - Weight fluctuation [Unknown]
  - Pain [Not Recovered/Not Resolved]

NARRATIVE: CASE EVENT DATE: 202001
